FAERS Safety Report 26121768 (Version 1)
Quarter: 2025Q4

REPORT INFORMATION
  Report Type: Spontaneous
  Country: US (occurrence: None)
  Receive Date: 20251204
  Receipt Date: 20251204
  Transmission Date: 20260117
  Serious: No
  Sender: FDA-CTU
  Company Number: None

PATIENT
  Age: 49 Year
  Sex: Male
  Weight: 94.5 kg

DRUGS (8)
  1. MOUNJARO [Suspect]
     Active Substance: TIRZEPATIDE
     Indication: Diabetes mellitus
     Dosage: 1 INJECTION ONCE A WEEK SUBCUTANEOUS ?
     Route: 058
     Dates: start: 20251107, end: 20251129
  2. PROGRAF [Concomitant]
     Active Substance: TACROLIMUS
  3. CELLCEPT [Concomitant]
     Active Substance: MYCOPHENOLATE MOFETIL
  4. LIALDA [Concomitant]
     Active Substance: MESALAMINE
  5. TRICOR [Concomitant]
     Active Substance: FENOFIBRATE
  6. OMEPRAZOLE [Concomitant]
     Active Substance: OMEPRAZOLE
  7. SYNJARDY [Concomitant]
     Active Substance: EMPAGLIFLOZIN\METFORMIN HYDROCHLORIDE
  8. ASPIRIN [Concomitant]
     Active Substance: ASPIRIN

REACTIONS (7)
  - Hypersensitivity [None]
  - Lip swelling [None]
  - Vomiting [None]
  - Diarrhoea [None]
  - Eructation [None]
  - Gastric pH decreased [None]
  - Flushing [None]

NARRATIVE: CASE EVENT DATE: 20251201
